FAERS Safety Report 8402372-X (Version None)
Quarter: 2012Q2

REPORT INFORMATION
  Report Type: 
  Country: None (occurrence: None)
  Receive Date: 20120529
  Receipt Date: 20090616
  Transmission Date: 20120825
  Serious: Yes (Death, Hospitalization)
  Sender: FDA-Public Use
  Company Number: 006477

PATIENT
  Age: 82 Year
  Sex: Male
  Weight: 55 kg

DRUGS (16)
  1. MUCOSTA (REBAMIPIDE) TABLET, 100 MG [Concomitant]
  2. PLETAL [Suspect]
     Indication: CEREBRAL INFARCTION
     Dosage: 100 MG, BID, ORAL
     Route: 048
     Dates: start: 20081117, end: 20081208
  3. MAGMITT (MAGNESIUM OXIDE) TABLET, 330 MG [Concomitant]
  4. YODEL-S (SENNA EXTRACT) TABLET, 80 MG [Concomitant]
  5. ASPIRIN [Concomitant]
  6. PREDNISOLONE [Concomitant]
  7. LANSOPRAZOLE [Concomitant]
  8. LOSARTAN POTASSIUM [Concomitant]
  9. AMARYL [Concomitant]
  10. JUVELA N (TOCOPHERYL NICOTINATE) CAPSULE, 200 MG [Concomitant]
  11. ISONIAZID [Concomitant]
  12. PREDNISOLONE (PREDNISOLONE) TABLET, 1 MG [Concomitant]
  13. KIPRES (MONTELUKAST SODIUM) TABLET, 10 MG [Concomitant]
  14. BONALON (ALENDRONATE SODIUM) TABLET, 35 MG [Concomitant]
  15. SIMVASTATIN [Suspect]
  16. SIGMART (NICORANDIL) TABLET, 5 MG [Concomitant]

REACTIONS (4)
  - LUNG CONSOLIDATION [None]
  - INTERSTITIAL LUNG DISEASE [None]
  - CARDIAC FAILURE ACUTE [None]
  - MALAISE [None]
